FAERS Safety Report 5243097-1 (Version None)
Quarter: 2007Q1

REPORT INFORMATION
  Report Type: 
  Country: None (occurrence: None)
  Receive Date: 20070215
  Receipt Date: 20070213
  Transmission Date: 20070707
  Serious: Yes (Death)
  Sender: FDA-Public Use
  Company Number: 002#1#2007-00036

PATIENT
  Age: 81 Year
  Sex: Male

DRUGS (1)
  1. TRILYTE-CHERRY FLAVORED [Suspect]
     Indication: COLONOSCOPY
     Dosage: 1ONCE, ORAL
     Route: 048
     Dates: start: 20070212, end: 20070212

REACTIONS (1)
  - CARDIAC DISORDER [None]
